FAERS Safety Report 7568527-1 (Version None)
Quarter: 2011Q2

REPORT INFORMATION
  Report Type: 
  Country: None (occurrence: None)
  Receive Date: 20110623
  Receipt Date: 20110613
  Transmission Date: 20111010
  Serious: Yes (Other)
  Sender: FDA-Public Use
  Company Number: JP-PFIZER INC-2011138308

PATIENT
  Age: 76 Year
  Sex: Female

DRUGS (4)
  1. MUCOSTA [Suspect]
     Dosage: 100 MG DAILY
     Route: 048
     Dates: end: 20110604
  2. CRESTOR [Concomitant]
     Dosage: UNK
     Route: 048
  3. CELECOXIB [Suspect]
     Indication: ARTHRALGIA
     Dosage: 200 MG, DAILY
     Route: 048
     Dates: start: 20110528, end: 20110604
  4. CLARITIN [Concomitant]
     Dosage: UNK
     Route: 048

REACTIONS (2)
  - PLATELET COUNT DECREASED [None]
  - HAEMORRHAGE SUBCUTANEOUS [None]
